FAERS Safety Report 17037599 (Version 1)
Quarter: 2019Q4

REPORT INFORMATION
  Report Type: Report from Study
  Country: BR (occurrence: BR)
  Receive Date: 20191115
  Receipt Date: 20191115
  Transmission Date: 20200122
  Serious: Yes (Death, Life-Threatening, Disabling, Other)
  Sender: FDA-Public Use
  Company Number: NVSC2019BR036001

PATIENT
  Age: 56 Year
  Sex: Male

DRUGS (3)
  1. PREDSIN [Suspect]
     Active Substance: CHLORAMPHENICOL\PREDNISOLONE
     Indication: PRODUCT USED FOR UNKNOWN INDICATION
     Dosage: 20 MG
     Route: 065
  2. VOTRIENT [Suspect]
     Active Substance: PAZOPANIB HYDROCHLORIDE
     Indication: PRODUCT USED FOR UNKNOWN INDICATION
     Dosage: UNK
     Route: 065
     Dates: start: 20191025
  3. ALLEGRA [Suspect]
     Active Substance: FEXOFENADINE HYDROCHLORIDE
     Indication: PRODUCT USED FOR UNKNOWN INDICATION
     Dosage: 180 MG
     Route: 065

REACTIONS (17)
  - Erythema [Unknown]
  - Face oedema [Unknown]
  - Dehydration [Unknown]
  - Renal neoplasm [Fatal]
  - General physical condition abnormal [Unknown]
  - Feeling cold [Unknown]
  - Pain [Unknown]
  - Cardiogenic shock [Fatal]
  - Fatigue [Unknown]
  - Malaise [Unknown]
  - Gait inability [Unknown]
  - Drug hypersensitivity [Unknown]
  - Metastases to bone [Unknown]
  - Hyperhidrosis [Unknown]
  - Mass [Unknown]
  - Dyspnoea exertional [Unknown]
  - Tremor [Unknown]

NARRATIVE: CASE EVENT DATE: 20191107
